FAERS Safety Report 5899145-9 (Version None)
Quarter: 2008Q3

REPORT INFORMATION
  Report Type: 
  Country: None (occurrence: None)
  Receive Date: 20080925
  Receipt Date: 20080909
  Transmission Date: 20090109
  Serious: No
  Sender: FDA-Public Use
  Company Number: US-B.I. PHARMACEUTICALS,INC./RIDGEFIELD-2008-BP-14286BP

PATIENT
  Sex: Female

DRUGS (1)
  1. ZANTAC 150 [Suspect]
     Dosage: 150MG
     Dates: start: 20080905, end: 20080908

REACTIONS (3)
  - ENERGY INCREASED [None]
  - INSOMNIA [None]
  - MYDRIASIS [None]
